FAERS Safety Report 10276986 (Version 2)
Quarter: 2014Q3

REPORT INFORMATION
  Report Type: Spontaneous
  Country: US (occurrence: US)
  Receive Date: 20140703
  Receipt Date: 20140728
  Transmission Date: 20150326
  Serious: Yes (Hospitalization)
  Sender: FDA-Public Use
  Company Number: US-BRISTOL-MYERS SQUIBB COMPANY-21079710

PATIENT
  Age: 44 Year
  Sex: Female

DRUGS (3)
  1. LOVENOX [Suspect]
     Active Substance: ENOXAPARIN SODIUM
     Route: 042
  2. LETAIRIS [Suspect]
     Active Substance: AMBRISENTAN
     Dosage: TABS
     Dates: start: 20121030
  3. COUMADIN [Suspect]
     Active Substance: WARFARIN SODIUM

REACTIONS (5)
  - Syncope [Unknown]
  - Cardiac pacemaker insertion [Unknown]
  - International normalised ratio fluctuation [Unknown]
  - Catheterisation cardiac [Unknown]
  - Contusion [Unknown]

NARRATIVE: CASE EVENT DATE: 201405
